FAERS Safety Report 4466715-4 (Version None)
Quarter: 2004Q3

REPORT INFORMATION
  Report Type: 
  Country: None (occurrence: None)
  Receive Date: 20040930
  Receipt Date: 20040917
  Transmission Date: 20050211
  Serious: Yes (Life-Threatening)
  Sender: FDA-Public Use
  Company Number: 0002806

PATIENT
  Age: 7 Year
  Sex: Male
  Weight: 23.4 kg

DRUGS (6)
  1. INTRALIPID 20% [Suspect]
     Indication: PARENTERAL NUTRITION
     Dosage: 150 ML / 6 WEEKLY / INTRAVENOUS
     Route: 042
     Dates: start: 19990222, end: 20040915
  2. DEXTROSE [Concomitant]
  3. TRAVASOL 10% [Concomitant]
  4. RINGER'S [Concomitant]
  5. ZANTAC [Concomitant]
  6. MULTI-VITAMINS [Concomitant]

REACTIONS (2)
  - BILIRUBIN CONJUGATED INCREASED [None]
  - BLOOD BILIRUBIN INCREASED [None]
